FAERS Safety Report 16877551 (Version 1)
Quarter: 2019Q4

REPORT INFORMATION
  Report Type: Spontaneous
  Country: US (occurrence: US)
  Receive Date: 20191002
  Receipt Date: 20191002
  Transmission Date: 20200122
  Serious: Yes (Hospitalization)
  Sender: FDA-Public Use
  Company Number: None

PATIENT
  Age: 67 Year
  Sex: Female
  Weight: 138.6 kg

DRUGS (10)
  1. MIDAZOLAM 2MG [Concomitant]
     Dates: start: 20181015, end: 20181015
  2. CEFAZOLIN 1G [Concomitant]
     Dates: start: 20181015, end: 20181015
  3. ZEMURON 50MG [Concomitant]
     Dates: start: 20181015, end: 20181015
  4. KETAMINE 150MG [Concomitant]
     Dates: start: 20181015, end: 20181015
  5. NO DRUG NAME [Concomitant]
     Dates: start: 20181015, end: 20181015
  6. VANCOMYCIN 2G [Concomitant]
     Dates: start: 20181015, end: 20181015
  7. LIDOCAINE. [Suspect]
     Active Substance: LIDOCAINE
     Indication: POSTOPERATIVE ANALGESIA
     Dosage: ?          OTHER FREQUENCY:2MG/MIN;?
     Route: 041
     Dates: start: 20181015, end: 20181015
  8. OXYCODONE/ACETAMINOPHEN 7.5/325 MG [Concomitant]
     Dates: start: 20181015, end: 20181015
  9. CELECOXIB 200MG [Concomitant]
     Active Substance: CELECOXIB
     Dates: start: 20181015, end: 20181015
  10. EPHEDRINE 50MG [Concomitant]
     Dates: start: 20181015, end: 20181015

REACTIONS (1)
  - Vision blurred [None]

NARRATIVE: CASE EVENT DATE: 20181015
